FAERS Safety Report 16382855 (Version 4)
Quarter: 2021Q2

REPORT INFORMATION
  Report Type: Report from Study
  Country: DE (occurrence: DE)
  Receive Date: 20190603
  Receipt Date: 20210607
  Transmission Date: 20210716
  Serious: Yes (Other)
  Sender: FDA-Public Use
  Company Number: DE-PFIZER INC-2019228637

PATIENT
  Age: 57 Year
  Sex: Male

DRUGS (4)
  1. DICLOFENAC [Suspect]
     Active Substance: DICLOFENAC
     Indication: AXIAL SPONDYLOARTHRITIS
     Dosage: 100 MG, QW (1 DAY PER WEEK)
     Route: 065
     Dates: end: 20190315
  2. COSENTYX [Suspect]
     Active Substance: SECUKINUMAB
     Dosage: 150 MG (UP?TITRATION)
     Route: 065
     Dates: start: 20140101
  3. IBUPROFEN. [Suspect]
     Active Substance: IBUPROFEN
     Indication: AXIAL SPONDYLOARTHRITIS
     Dosage: 600 MG, QD
     Route: 065
     Dates: end: 20140101
  4. COSENTYX [Suspect]
     Active Substance: SECUKINUMAB
     Indication: AXIAL SPONDYLOARTHRITIS
     Dosage: 150 MG, QMO (Q4W)
     Route: 065
     Dates: end: 20190214

REACTIONS (10)
  - Nausea [Unknown]
  - Rib fracture [Unknown]
  - Diarrhoea [Unknown]
  - Herpes zoster [Unknown]
  - Angiocardiogram [Unknown]
  - Hepatic mass [Not Recovered/Not Resolved]
  - Rash [Unknown]
  - Productive cough [Unknown]
  - Fall [Unknown]
  - Oral candidiasis [Unknown]

NARRATIVE: CASE EVENT DATE: 20190214
